FAERS Safety Report 7936134-4 (Version None)
Quarter: 2011Q4

REPORT INFORMATION
  Report Type: 
  Country: None (occurrence: None)
  Receive Date: 20111123
  Receipt Date: 20111118
  Transmission Date: 20120403
  Serious: No
  Sender: FDA-Public Use
  Company Number: US-B.I. PHARMACEUTICALS,INC./RIDGEFIELD-2011-BP-23945BP

PATIENT
  Age: 69 Year
  Sex: Female
  Weight: 56.4 kg

DRUGS (5)
  1. VITAMIN E [Concomitant]
  2. CALCIUM [Concomitant]
     Dosage: 1200 MG
  3. SUMATRIPTAN [Concomitant]
     Indication: MIGRAINE
  4. OMEPRAZOLE [Concomitant]
     Dosage: 20 MG
  5. SPIRIVA [Suspect]
     Indication: CHRONIC OBSTRUCTIVE PULMONARY DISEASE
     Dosage: 18 MCG

REACTIONS (1)
  - DYSPNOEA [None]
